FAERS Safety Report 4314689-9 (Version None)
Quarter: 2004Q1

REPORT INFORMATION
  Report Type: 
  Country: None (occurrence: None)
  Receive Date: 20040308
  Receipt Date: 20040224
  Transmission Date: 20041129
  Serious: Yes (Death)
  Sender: FDA-Public Use
  Company Number: 2004-BP-01436NB

PATIENT
  Age: 80 Year
  Sex: Female

DRUGS (2)
  1. MOBIC [Suspect]
     Indication: BACK PAIN
     Dosage: 10 MG (NR) PO
     Route: 048
     Dates: start: 20040113
  2. ERYTHROCIN [Concomitant]

REACTIONS (1)
  - SUDDEN DEATH [None]
